FAERS Safety Report 7381631-6 (Version None)
Quarter: 2011Q1

REPORT INFORMATION
  Report Type: 
  Country: None (occurrence: None)
  Receive Date: 20110329
  Receipt Date: 20110321
  Transmission Date: 20110831
  Serious: Yes (Death)
  Sender: FDA-Public Use
  Company Number: US-GILEAD-2011-0036132

PATIENT
  Sex: Male
  Weight: 79.904 kg

DRUGS (12)
  1. ADVAIR DISKUS 100/50 [Concomitant]
  2. DILTIAZEM [Concomitant]
  3. LETAIRIS [Suspect]
     Indication: CHRONIC OBSTRUCTIVE PULMONARY DISEASE
  4. FLOMAX [Concomitant]
     Indication: CHRONIC OBSTRUCTIVE PULMONARY DISEASE
  5. SPIRIVA [Concomitant]
  6. LETAIRIS [Suspect]
     Indication: PULMONARY HYPERTENSION
     Route: 048
     Dates: start: 20081119, end: 20110131
  7. VYTORIN [Concomitant]
  8. DIGOXIN [Concomitant]
  9. ALDACTONE [Concomitant]
  10. FLOMAX [Concomitant]
     Indication: PULMONARY HYPERTENSION
  11. LASIX [Concomitant]
  12. ACIPHEX [Concomitant]

REACTIONS (1)
  - CHRONIC OBSTRUCTIVE PULMONARY DISEASE [None]
